FAERS Safety Report 9223159 (Version 5)
Quarter: 2013Q3

REPORT INFORMATION
  Report Type: Spontaneous
  Country: US (occurrence: US)
  Receive Date: 20130410
  Receipt Date: 20130712
  Transmission Date: 20140515
  Serious: Yes (Hospitalization)
  Sender: FDA-Public Use
  Company Number: US-VERTEX PHARMACEUTICALS INC.-2013-004316

PATIENT
  Age: 64 Year
  Sex: Male

DRUGS (18)
  1. INCIVEK [Suspect]
     Indication: CHRONIC HEPATITIS C
     Dosage: 2250 MG, QD
     Route: 048
     Dates: start: 20120831, end: 20121025
  2. PEGINTERFERON ALFA-2A [Suspect]
     Indication: CHRONIC HEPATITIS C
     Dosage: 180 ?G, QW
     Dates: start: 20120831
  3. RIBAVIRIN [Suspect]
     Indication: CHRONIC HEPATITIS C
     Dosage: 1200 MG, QD
     Route: 048
     Dates: start: 20120831
  4. ALLOPURINOL [Concomitant]
     Dosage: UNK
     Dates: start: 20120918, end: 20121023
  5. FLUOCINONIDE [Concomitant]
     Dosage: UNK
     Dates: start: 20121018, end: 20121101
  6. CETRIZINE [Concomitant]
     Dosage: UNK
     Dates: start: 20121023, end: 20121028
  7. PRAMOXINE [Concomitant]
     Dosage: UNK
     Dates: start: 20121023, end: 20121028
  8. PREDNISONE [Concomitant]
     Dosage: UNK
     Dates: start: 20121027, end: 20130404
  9. OMEPRAZOLE [Concomitant]
     Dosage: UNK
     Dates: start: 20120914, end: 20121023
  10. IMODIUM [Concomitant]
     Dosage: UNK
     Dates: start: 20120904, end: 20121023
  11. AMBIEN [Concomitant]
     Dosage: UNK
     Dates: start: 20120830, end: 20121023
  12. CITALOPRAM [Concomitant]
     Dosage: UNK
     Dates: start: 20120203, end: 20121028
  13. BENAZEPRIL HCL [Concomitant]
     Dosage: UNK
     Dates: start: 20111215, end: 20121023
  14. ACETAMINOPHEN [Concomitant]
  15. ACETAMINOPHEN W/CODEINE PHOSPHATE [Concomitant]
     Dosage: UNK
     Dates: start: 20121029, end: 20121130
  16. LORAZEPAM [Concomitant]
     Dosage: UNK
     Dates: start: 20121029
  17. PETROLATUM [Concomitant]
     Dosage: UNK
     Dates: start: 20121029, end: 20121101
  18. SODIUM CHLORIDE [Concomitant]

REACTIONS (1)
  - Drug reaction with eosinophilia and systemic symptoms [Recovered/Resolved]
